FAERS Safety Report 12608113 (Version 3)
Quarter: 2016Q4

REPORT INFORMATION
  Report Type: Spontaneous
  Country: None (occurrence: US)
  Receive Date: 20160729
  Receipt Date: 20161214
  Transmission Date: 20170207
  Serious: Yes (Other)
  Sender: FDA-Public Use
  Company Number: US-TEVA-679191USA

PATIENT
  Age: 59 Year
  Sex: Female

DRUGS (16)
  1. ZANAFLEX [Concomitant]
     Active Substance: TIZANIDINE HYDROCHLORIDE
  2. SYNTHROID [Concomitant]
     Active Substance: LEVOTHYROXINE SODIUM
  3. KLOR-CON [Concomitant]
     Active Substance: POTASSIUM CHLORIDE
  4. DULOXETINE. [Concomitant]
     Active Substance: DULOXETINE
  5. URSODIOL. [Concomitant]
     Active Substance: URSODIOL
  6. LOSARTAN. [Concomitant]
     Active Substance: LOSARTAN
  7. AMLODIPINE BESILATE [Concomitant]
     Active Substance: AMLODIPINE BESYLATE
  8. ZANTAC [Concomitant]
     Active Substance: RANITIDINE HYDROCHLORIDE
     Route: 065
  9. VITAMIN D-2 [Concomitant]
  10. METOPROLOL TARTRATE. [Concomitant]
     Active Substance: METOPROLOL TARTRATE
  11. CENTRUM [Concomitant]
     Active Substance: VITAMINS
     Route: 065
  12. CLONAZEPAM. [Concomitant]
     Active Substance: CLONAZEPAM
  13. GABAPENTIN. [Concomitant]
     Active Substance: GABAPENTIN
  14. BACLOFEN. [Concomitant]
     Active Substance: BACLOFEN
  15. COPAXONE [Suspect]
     Active Substance: GLATIRAMER ACETATE
     Indication: MULTIPLE SCLEROSIS
     Route: 058
  16. AMANTADINE [Concomitant]
     Active Substance: AMANTADINE
     Route: 065

REACTIONS (4)
  - Gastrointestinal neoplasm [Unknown]
  - Multiple sclerosis relapse [Unknown]
  - General physical health deterioration [Unknown]
  - Aphasia [Unknown]

NARRATIVE: CASE EVENT DATE: 201607
